FAERS Safety Report 4349537-4 (Version None)
Quarter: 2004Q2

REPORT INFORMATION
  Report Type: 
  Country: None (occurrence: None)
  Receive Date: 20040428
  Receipt Date: 20040309
  Transmission Date: 20050107
  Serious: Yes (Death, Life-Threatening, Hospitalization)
  Sender: FDA-Public Use
  Company Number: DE-MERCK-0403DEU00059

PATIENT
  Age: 74 Year
  Sex: Female
  Weight: 80 kg

DRUGS (10)
  1. AMLODIPINE BESYLATE [Concomitant]
     Route: 065
  2. CERTOPARIN SODIUM [Concomitant]
     Route: 065
     Dates: start: 20040203
  3. DIGOXIN [Concomitant]
     Route: 065
  4. DIPYRONE [Concomitant]
     Route: 065
     Dates: start: 20040203
  5. HYDROCHLOROTHIAZIDE [Concomitant]
     Route: 065
  6. METOPROLOL SUCCINATE [Concomitant]
     Route: 065
  7. PANTOPRAZOLE SODIUM [Concomitant]
     Route: 065
  8. RAMIPRIL [Concomitant]
     Route: 065
  9. VIOXX [Suspect]
     Indication: LOCALISED OSTEOARTHRITIS
     Route: 048
     Dates: start: 20020101, end: 20040201
  10. TRAMADOL HYDROCHLORIDE [Concomitant]
     Route: 065
     Dates: start: 20040203

REACTIONS (3)
  - GASTRIC PERFORATION [None]
  - LOCALISED OSTEOARTHRITIS [None]
  - SEPSIS [None]
